FAERS Safety Report 5727851-5 (Version None)
Quarter: 2008Q2

REPORT INFORMATION
  Report Type: 
  Country: None (occurrence: None)
  Receive Date: 20080430
  Receipt Date: 20080418
  Transmission Date: 20081010
  Serious: Yes (Hospitalization)
  Sender: FDA-Public Use
  Company Number: 2008-01211

PATIENT
  Age: 59 Year
  Sex: Female
  Weight: 109 kg

DRUGS (31)
  1. VELCADE [Suspect]
     Indication: MULTIPLE MYELOMA
     Dosage: 1 MG/M2,
     Dates: start: 20060517, end: 20060623
  2. DEXAMETHASONE TAB [Suspect]
     Indication: MULTIPLE MYELOMA
     Dosage: 40 MG,
     Dates: start: 20060523, end: 20060623
  3. THALIDOMIDE [Suspect]
     Indication: MULTIPLE MYELOMA
     Dosage: 200 MG,
     Dates: start: 20060523, end: 20060619
  4. CISPLATIN [Suspect]
     Indication: MULTIPLE MYELOMA
     Dosage: 10 MG/M2,
     Dates: start: 20060523, end: 20060623
  5. DOXORUBICIN HCL [Suspect]
     Indication: MULTIPLE MYELOMA
     Dosage: 10 MG/M2,
     Dates: start: 20060523, end: 20060623
  6. CYCLOPHOSPHAMIDE [Suspect]
     Indication: MULTIPLE MYELOMA
     Dosage: 400 MG/M2;
     Dates: start: 20060523, end: 20060623
  7. ETOPOSIDE [Suspect]
     Indication: MULTIPLE MYELOMA
     Dosage: 40 MG/M2,
     Dates: start: 20060523, end: 20060623
  8. DIOVAN [Concomitant]
  9. FUROSEMIDE [Concomitant]
  10. FEXOFENADINE HYDROCHLORIDE [Concomitant]
  11. EZETIMIBE [Concomitant]
  12. SIMVASTATIN [Concomitant]
  13. PAROXETINE HCL [Concomitant]
  14. FLONASE (FLUTICASONE PROPIONATE) INHALER [Concomitant]
  15. DICYCLOMINE HCL [Concomitant]
  16. PROPOXYPHENE NAPSYLVATE W/ACETAMINOPHENE (PARACETAMOL, DEXTROPROPOXYPH [Concomitant]
  17. LORAZEPAM [Concomitant]
  18. LEVSIN (HYOSCYAMINE SULFATE) [Concomitant]
  19. FLEXERIL [Concomitant]
  20. CARAFATE [Concomitant]
  21. LACTULOSE [Concomitant]
  22. FLAGYL [Concomitant]
  23. HEPARIN [Concomitant]
  24. SODIUM CHLORIDE [Concomitant]
  25. DURAGESIC (FENTANYYL) [Concomitant]
  26. TUMS (CALCIUM CARBONATE) [Concomitant]
  27. LEVAQUIN [Concomitant]
  28. FLUCONAZOLE [Concomitant]
  29. ACYCLOVIR [Concomitant]
  30. RANITIDINE HYDROCHLORIDE [Concomitant]
  31. REGLAN [Concomitant]

REACTIONS (1)
  - SYNCOPE VASOVAGAL [None]
